FAERS Safety Report 7427376-5 (Version None)
Quarter: 2011Q2

REPORT INFORMATION
  Report Type: 
  Country: None (occurrence: None)
  Receive Date: 20110420
  Receipt Date: 20110412
  Transmission Date: 20111010
  Serious: Yes (Hospitalization, Other)
  Sender: FDA-Public Use
  Company Number: FR-PFIZER INC-2010129750

PATIENT
  Age: 60 Year
  Sex: Female

DRUGS (2)
  1. DILANTIN [Suspect]
     Indication: STATUS EPILEPTICUS
     Dosage: UNK
     Route: 042
  2. LYRICA [Suspect]
     Dosage: 75 MG, 2X/DAY

REACTIONS (2)
  - STATUS EPILEPTICUS [None]
  - TOXIC SKIN ERUPTION [None]
